FAERS Safety Report 8329620-9 (Version None)
Quarter: 2012Q2

REPORT INFORMATION
  Report Type: 
  Country: None (occurrence: None)
  Receive Date: 20120502
  Receipt Date: 20120427
  Transmission Date: 20120825
  Serious: Yes (Other)
  Sender: FDA-Public Use
  Company Number: US-PFIZER INC-2012105290

PATIENT
  Sex: Female
  Weight: 66.667 kg

DRUGS (5)
  1. VESICARE [Concomitant]
     Dosage: UNK
  2. LYRICA [Suspect]
     Indication: HERPES ZOSTER
     Dosage: 150 MG, 2X/DAY
     Dates: start: 20120201
  3. LYRICA [Suspect]
     Indication: PAIN
  4. ATENOLOL [Concomitant]
     Indication: HYPERTENSION
     Dosage: UNKN, DAILY
     Route: 048
  5. AZOR [Concomitant]
     Indication: HYPERTENSION
     Dosage: UNK

REACTIONS (6)
  - FATIGUE [None]
  - SKIN DISCOLOURATION [None]
  - MEMORY IMPAIRMENT [None]
  - RASH [None]
  - BLOOD GLUCOSE DECREASED [None]
  - PAIN [None]
